FAERS Safety Report 7981525-9 (Version None)
Quarter: 2011Q4

REPORT INFORMATION
  Report Type: 
  Country: None (occurrence: None)
  Receive Date: 20111215
  Receipt Date: 20111213
  Transmission Date: 20120403
  Serious: Yes (Other)
  Sender: FDA-Public Use
  Company Number: AU-PFIZER INC-2011288602

PATIENT
  Age: 38 Year
  Sex: Female
  Weight: 56 kg

DRUGS (4)
  1. VARENICLINE TARTRATE [Suspect]
     Indication: SMOKING CESSATION THERAPY
     Dosage: 0.5 MG, UNK
     Route: 048
     Dates: start: 20080612, end: 20080601
  2. VARENICLINE TARTRATE [Suspect]
     Dosage: 1 MG, UNK
     Dates: start: 20080601, end: 20080626
  3. CAFFEINE [Concomitant]
  4. EFFEXOR XR [Concomitant]
     Indication: DEPRESSION
     Dosage: 75MG TO 150MG DAILY
     Route: 048
     Dates: start: 20070101, end: 20090101

REACTIONS (2)
  - SUICIDAL IDEATION [None]
  - DEPRESSION [None]
